FAERS Safety Report 19657131 (Version 1)
Quarter: 2021Q3

REPORT INFORMATION
  Report Type: Spontaneous
  Country: JP (occurrence: JP)
  Receive Date: 20210804
  Receipt Date: 20210804
  Transmission Date: 20211014
  Serious: Yes (Hospitalization)
  Sender: FDA-Public Use
  Company Number: JP-ENDO PHARMACEUTICALS INC-2021-010514

PATIENT
  Age: 29 Year
  Sex: Female
  Weight: 48 kg

DRUGS (6)
  1. GANIRELIX [Concomitant]
     Active Substance: GANIRELIX
     Indication: PRODUCT USED FOR UNKNOWN INDICATION
     Dosage: 0.25 MG, DAILY (STARTED 6 DAYS AFTER FSH ADMINISTRATION)
     Route: 065
  2. FSH [Concomitant]
     Active Substance: FOLLITROPIN
     Indication: BLOOD FOLLICLE STIMULATING HORMONE ABNORMAL
     Dosage: 225 IU, DAILY (STARTED SELF INJECTING NEXT DAY AFTER LETROZOLE)
     Route: 065
  3. LETROZOLE. [Suspect]
     Active Substance: LETROZOLE
     Dosage: 5 MG, DAILY
     Route: 048
  4. GONADOTROPIN RELEASING HORMONE AGONISTS [Concomitant]
     Indication: OOCYTE HARVEST
     Dosage: 300 ?G, TWO DOSES ONE HOUR APART
     Route: 045
  5. CABERGOLINE. [Concomitant]
     Active Substance: CABERGOLINE
     Indication: OVARIAN HYPERSTIMULATION SYNDROME
     Dosage: 0.5 MG, UNKNOWN
     Route: 048
  6. LETROZOLE. [Suspect]
     Active Substance: LETROZOLE
     Indication: HORMONE RECEPTOR POSITIVE BREAST CANCER
     Dosage: 5 MG, DAILY
     Route: 048

REACTIONS (4)
  - Off label use [Unknown]
  - Haemoperitoneum [Recovering/Resolving]
  - Ovarian rupture [Recovering/Resolving]
  - Ovarian hyperstimulation syndrome [Recovering/Resolving]
